FAERS Safety Report 24109341 (Version 1)
Quarter: 2024Q3

REPORT INFORMATION
  Report Type: Spontaneous
  Country: AU (occurrence: None)
  Receive Date: 20240718
  Receipt Date: 20240718
  Transmission Date: 20241016
  Serious: Yes (Other)
  Sender: ORION
  Company Number: AU-PFIZER INC-PV202400090029

PATIENT
  Age: 59 Year
  Sex: Male
  Weight: 95 kg

DRUGS (3)
  1. METHOTREXATE [Suspect]
     Active Substance: METHOTREXATE
     Indication: Product used for unknown indication
  2. PREDNISOLONE [Concomitant]
     Active Substance: PREDNISOLONE
     Indication: Neurosarcoidosis
  3. PREDNISOLONE [Concomitant]
     Active Substance: PREDNISOLONE
     Dosage: MTP X 3 DAYS

REACTIONS (8)
  - Shunt occlusion [Unknown]
  - Drug effect less than expected [Unknown]
  - Metastases to meninges [Unknown]
  - Neurosarcoidosis [Unknown]
  - Sarcoidosis [Unknown]
  - Hydrocephalus [Unknown]
  - Lymphadenopathy [Unknown]
  - Lumbar radiculopathy [Unknown]
